FAERS Safety Report 4955997-8 (Version None)
Quarter: 2006Q1

REPORT INFORMATION
  Report Type: 
  Country: None (occurrence: None)
  Receive Date: 20060328
  Receipt Date: 20050414
  Transmission Date: 20060701
  Serious: Yes (Hospitalization)
  Sender: FDA-Public Use
  Company Number: US-MERCK-0504USA03082

PATIENT
  Age: 53 Year
  Sex: Female
  Weight: 76 kg

DRUGS (3)
  1. VIOXX [Suspect]
     Indication: ARTHRITIS
     Route: 048
     Dates: start: 20020101, end: 20040101
  2. COZAAR [Concomitant]
     Indication: HYPERTENSION
     Route: 065
  3. LIPITOR [Concomitant]
     Indication: BLOOD CHOLESTEROL INCREASED
     Route: 065

REACTIONS (11)
  - ATRIAL FIBRILLATION [None]
  - CARDIAC FAILURE [None]
  - CEREBROVASCULAR ACCIDENT [None]
  - CHEST PAIN [None]
  - HEPATOCELLULAR DAMAGE [None]
  - MYOCARDIAL INFARCTION [None]
  - PALPITATIONS [None]
  - POLYTRAUMATISM [None]
  - RENAL DISORDER [None]
  - THROMBOSIS [None]
  - ULCER [None]
